FAERS Safety Report 8502327-0 (Version None)
Quarter: 2012Q3

REPORT INFORMATION
  Report Type: 
  Country: None (occurrence: None)
  Receive Date: 20120711
  Receipt Date: 20120626
  Transmission Date: 20120928
  Serious: Yes (Hospitalization, Other)
  Sender: FDA-Public Use
  Company Number: SE-JNJFOC-20120703493

PATIENT
  Sex: Male

DRUGS (7)
  1. PALEXIA DEPOT [Suspect]
     Indication: POST LAMINECTOMY SYNDROME
     Dosage: CUMULATIVE DOSE TO FIRST REACTION 17100 MG
     Route: 048
     Dates: start: 20120110, end: 20120502
  2. PARAFLEX [Concomitant]
     Indication: PRODUCT USED FOR UNKNOWN INDICATION
     Route: 065
  3. GABAPENTIN [Concomitant]
     Route: 048
     Dates: start: 20081113, end: 20120501
  4. TRAMADOL HEXAL [Concomitant]
     Indication: PRODUCT USED FOR UNKNOWN INDICATION
     Route: 048
  5. GABAPENTIN [Concomitant]
     Indication: PRODUCT USED FOR UNKNOWN INDICATION
     Route: 048
     Dates: start: 20120502
  6. FENTANYL [Concomitant]
     Indication: PRODUCT USED FOR UNKNOWN INDICATION
     Route: 062
  7. POSTAFEN [Concomitant]
     Indication: PRODUCT USED FOR UNKNOWN INDICATION
     Route: 048
     Dates: start: 20120209

REACTIONS (7)
  - NAUSEA [None]
  - DYSPNOEA [None]
  - FATIGUE [None]
  - DISORIENTATION [None]
  - AMNESIA [None]
  - ANXIETY [None]
  - COGNITIVE DISORDER [None]
